FAERS Safety Report 7515333-X (Version None)
Quarter: 2011Q2

REPORT INFORMATION
  Report Type: 
  Country: None (occurrence: None)
  Receive Date: 20110601
  Receipt Date: 20100611
  Transmission Date: 20111010
  Serious: No
  Sender: FDA-Public Use
  Company Number: US-PFIZER INC-2010042984

PATIENT
  Sex: Male
  Weight: 74.83 kg

DRUGS (7)
  1. CHANTIX [Suspect]
     Indication: SMOKING CESSATION THERAPY
     Dosage: 0.5 MG, 1X/DAY
     Dates: start: 20090101
  2. CYMBALTA [Concomitant]
  3. SEROQUEL [Concomitant]
  4. PEPCID [Concomitant]
     Dosage: UNK
  5. CHANTIX [Suspect]
     Dosage: 1 MG, 2X/DAY
     Route: 048
     Dates: start: 20090101, end: 20090101
  6. METHADONE [Concomitant]
     Dosage: UNK
  7. SYNTHROID [Concomitant]
     Dosage: UNK

REACTIONS (4)
  - FATIGUE [None]
  - ASTHENIA [None]
  - FEELING ABNORMAL [None]
  - ABNORMAL DREAMS [None]
